FAERS Safety Report 6530229-8 (Version None)
Quarter: 2010Q1

REPORT INFORMATION
  Report Type: 
  Country: None (occurrence: None)
  Receive Date: 20100107
  Receipt Date: 20091230
  Transmission Date: 20100710
  Serious: Yes (Hospitalization)
  Sender: FDA-Public Use
  Company Number: US-PFIZER INC-2010000356

PATIENT
  Sex: Male
  Weight: 54 kg

DRUGS (6)
  1. CHANTIX [Suspect]
     Indication: SMOKING CESSATION THERAPY
     Dosage: FREQUENCY: 2X/DAY,
     Dates: start: 20090101, end: 20090101
  2. COREG [Concomitant]
     Indication: HYPERTENSION
     Dosage: UNK
  3. AMLODIPINE BESILATE [Concomitant]
     Indication: HYPERTENSION
     Dosage: UNK
  4. SIMVASTATIN [Concomitant]
     Indication: BLOOD CHOLESTEROL INCREASED
     Dosage: 20 MG, UNK
  5. ZANTAC [Concomitant]
     Dosage: FREQUENCY: AS NEEDED,
  6. PRILOSEC [Concomitant]

REACTIONS (3)
  - ABNORMAL DREAMS [None]
  - ARTERIAL THROMBOSIS LIMB [None]
  - DEPRESSION [None]
